FAERS Safety Report 8605184-7 (Version None)
Quarter: 2012Q3

REPORT INFORMATION
  Report Type: 
  Country: None (occurrence: None)
  Receive Date: 20120820
  Receipt Date: 20120814
  Transmission Date: 20120928
  Serious: Yes (Life-Threatening, Hospitalization)
  Sender: FDA-Public Use
  Company Number: FR-ASTRAZENECA-2012SE57426

PATIENT
  Age: 26380 Day
  Sex: Male

DRUGS (5)
  1. AUGMENTIN '500' [Suspect]
     Route: 042
     Dates: start: 20120702, end: 20120702
  2. TRACRIUM [Suspect]
     Indication: GENERAL ANAESTHESIA
     Route: 042
     Dates: start: 20120702, end: 20120702
  3. SEVOFLURANE [Suspect]
     Indication: GENERAL ANAESTHESIA
     Route: 055
     Dates: start: 20120702, end: 20120702
  4. DIPRIVAN [Suspect]
     Indication: GENERAL ANAESTHESIA
     Route: 042
     Dates: start: 20120702, end: 20120702
  5. SUFENTANYL MYLAN [Suspect]
     Indication: GENERAL ANAESTHESIA
     Route: 042
     Dates: start: 20120702, end: 20120702

REACTIONS (1)
  - ANAPHYLACTIC SHOCK [None]
